FAERS Safety Report 9078264 (Version 1)
Quarter: 2013Q1

REPORT INFORMATION
  Report Type: Report from Study
  Country: US (occurrence: US)
  Receive Date: 20130130
  Receipt Date: 20130130
  Transmission Date: 20140127
  Serious: No
  Sender: FDA-Public Use
  Company Number: US-ABBOTT-12P-163-0936572-00

PATIENT
  Age: 74 Year
  Sex: Female

DRUGS (10)
  1. HUMIRA 40 MG/0.8 ML PEN [Suspect]
     Indication: ANKYLOSING SPONDYLITIS
     Dates: start: 20120503
  2. CELEXA [Concomitant]
     Indication: ANKYLOSING SPONDYLITIS
  3. PANTOPRAZOLE [Concomitant]
     Indication: EROSIVE OESOPHAGITIS
     Dosage: DAILY
  4. PANTOPRAZOLE [Concomitant]
     Indication: GASTROOESOPHAGEAL REFLUX DISEASE
  5. ZYPREXA [Concomitant]
     Indication: DEPRESSION
     Dosage: 2.5 DAILY
  6. XANAX [Concomitant]
     Indication: ANXIETY
  7. XANAX [Concomitant]
     Indication: DEPRESSION
  8. CENTRUM MULTIVITAMIN [Concomitant]
     Indication: PRODUCT USED FOR UNKNOWN INDICATION
  9. CALTRATE WITH VIT D [Concomitant]
     Indication: PRODUCT USED FOR UNKNOWN INDICATION
  10. PROZAC [Concomitant]
     Indication: DEPRESSION
     Dosage: 10 MG DAILY

REACTIONS (2)
  - Injection site pain [Recovered/Resolved]
  - Cystitis [Unknown]
